FAERS Safety Report 4708901-1 (Version None)
Quarter: 2005Q3

REPORT INFORMATION
  Report Type: 
  Country: None (occurrence: None)
  Receive Date: 20050707
  Receipt Date: 20050602
  Transmission Date: 20060218
  Serious: Yes (Life-Threatening, Hospitalization)
  Sender: FDA-Public Use
  Company Number: JP-MERCK-0506USA01023

PATIENT
  Age: 28 Year
  Sex: Male

DRUGS (12)
  1. PEPCID [Suspect]
     Route: 065
  2. PROGRAF [Suspect]
     Indication: IMMUNOSUPPRESSION
     Route: 042
     Dates: start: 20040517, end: 20040518
  3. PROGRAF [Suspect]
     Route: 042
     Dates: start: 20040519, end: 20040519
  4. PROGRAF [Suspect]
     Route: 042
     Dates: start: 20040520, end: 20040521
  5. PROGRAF [Suspect]
     Route: 042
     Dates: start: 20040522, end: 20040522
  6. PROGRAF [Suspect]
     Route: 042
     Dates: start: 20040523, end: 20040524
  7. SULPERAZONE [Concomitant]
     Route: 042
     Dates: start: 20040519, end: 20040524
  8. BASILIXIMAB [Suspect]
     Indication: IMMUNOSUPPRESSION
     Route: 042
     Dates: start: 20040519, end: 20040523
  9. BREDININ [Suspect]
     Indication: IMMUNOSUPPRESSION
     Route: 048
     Dates: start: 20040517, end: 20040518
  10. BREDININ [Suspect]
     Route: 048
     Dates: start: 20040521, end: 20040524
  11. PREDONINE [Concomitant]
     Route: 065
     Dates: start: 20040519, end: 20040519
  12. PREDONINE [Concomitant]
     Route: 065
     Dates: start: 20040520, end: 20040521

REACTIONS (2)
  - INTERSTITIAL LUNG DISEASE [None]
  - POST PROCEDURAL COMPLICATION [None]
